FAERS Safety Report 18452455 (Version 2)
Quarter: 2020Q4

REPORT INFORMATION
  Report Type: Spontaneous
  Country: US (occurrence: US)
  Receive Date: 20201102
  Receipt Date: 20201203
  Transmission Date: 20210114
  Serious: No
  Sender: FDA-Public Use
  Company Number: US-BAYER-2020-231232

PATIENT
  Age: 73 Year
  Sex: Female

DRUGS (2)
  1. MIRALAX [Suspect]
     Active Substance: POLYETHYLENE GLYCOL 3350
     Indication: GASTROINTESTINAL DISORDER
     Dosage: UNK
  2. MIRALAX [Suspect]
     Active Substance: POLYETHYLENE GLYCOL 3350
     Indication: GASTROINTESTINAL DISORDER
     Dosage: USED ACCORDING TO LABELED DIRECTIONS
     Route: 048
     Dates: start: 20201015, end: 20201021

REACTIONS (3)
  - Off label use [None]
  - Drug ineffective for unapproved indication [None]
  - Product expiration date issue [Unknown]

NARRATIVE: CASE EVENT DATE: 202010
